FAERS Safety Report 7543804-9 (Version None)
Quarter: 2011Q2

REPORT INFORMATION
  Report Type: 
  Country: None (occurrence: None)
  Receive Date: 20110613
  Receipt Date: 20110606
  Transmission Date: 20111010
  Serious: Yes (Other)
  Sender: FDA-Public Use
  Company Number: DE-GENZYME-FLUD-1001212

PATIENT
  Age: 21 Year
  Sex: Female

DRUGS (13)
  1. 03-OKT [Suspect]
     Indication: ACUTE MYELOID LEUKAEMIA RECURRENT
  2. CYCLOPHOSPHAMIDE [Suspect]
     Indication: ACUTE MYELOID LEUKAEMIA RECURRENT
  3. CYCLOSPORINE [Concomitant]
     Indication: PROPHYLAXIS AGAINST GRAFT VERSUS HOST DISEASE
     Dosage: UNK
     Route: 065
  4. FLUDARA [Suspect]
     Indication: ACUTE MYELOID LEUKAEMIA RECURRENT
  5. 03-OKT [Suspect]
     Indication: STEM CELL TRANSPLANT
     Dosage: UNK
     Route: 065
  6. YTTRIUM (90 Y) [Suspect]
     Indication: ACUTE MYELOID LEUKAEMIA RECURRENT
  7. INDIUM (111 IN) [Suspect]
     Indication: ACUTE MYELOID LEUKAEMIA RECURRENT
  8. ANTI-THYMOCYTE GLOBULIN NOS [Suspect]
     Indication: STEM CELL TRANSPLANT
     Dosage: UNK
     Route: 065
  9. CYCLOPHOSPHAMIDE [Suspect]
     Indication: STEM CELL TRANSPLANT
     Dosage: 120 UNK, UNK
     Route: 065
  10. YTTRIUM (90 Y) [Suspect]
     Indication: STEM CELL TRANSPLANT
     Dosage: UNK
     Route: 042
  11. INDIUM (111 IN) [Suspect]
     Indication: STEM CELL TRANSPLANT
     Dosage: 71 +/- 28 MBQ, ONCE
     Route: 042
  12. ANTI-THYMOCYTE GLOBULIN NOS [Suspect]
     Indication: ACUTE MYELOID LEUKAEMIA RECURRENT
  13. FLUDARA [Suspect]
     Indication: STEM CELL TRANSPLANT
     Dosage: 160 MG/M2, UNK
     Route: 065

REACTIONS (5)
  - CHRONIC GRAFT VERSUS HOST DISEASE [None]
  - CYSTITIS VIRAL [None]
  - BK VIRUS INFECTION [None]
  - CYTOMEGALOVIRUS INFECTION [None]
  - ACUTE GRAFT VERSUS HOST DISEASE [None]
